FAERS Safety Report 9826042 (Version 2)
Quarter: 2014Q4

REPORT INFORMATION
  Report Type: Spontaneous
  Country: GB (occurrence: None)
  Receive Date: 20131107
  Receipt Date: 20141205
  Transmission Date: 20150529
  Serious: Yes (Disabling)
  Sender: FDA-Public Use
  Company Number: 2013GMK006751

PATIENT
  Age: 76 Year
  Sex: Male
  Weight: 71.5 kg

DRUGS (4)
  1. RAMIPRIL (RAMIPRIL) [Concomitant]
     Active Substance: RAMIPRIL
  2. PRAMIPEXOLE [Suspect]
     Active Substance: PRAMIPEXOLE
     Indication: PARKINSON^S DISEASE
     Route: 048
     Dates: start: 20130702, end: 20130712
  3. PRAMIPEXOLE [Suspect]
     Active Substance: PRAMIPEXOLE
     Indication: PARKINSON^S DISEASE
     Route: 048
     Dates: start: 20130622, end: 20130702
  4. MADOPAR (BENSERAZIDE HYDROCHLORIDE, LEVODOPA) [Concomitant]

REACTIONS (8)
  - Feeling abnormal [None]
  - Fatigue [None]
  - Gait disturbance [None]
  - Drug ineffective [None]
  - Listless [None]
  - Coordination abnormal [None]
  - Dizziness [None]
  - Product substitution issue [None]

NARRATIVE: CASE EVENT DATE: 20130622
